FAERS Safety Report 15209423 (Version 1)
Quarter: 2018Q3

REPORT INFORMATION
  Report Type: Spontaneous
  Country: US (occurrence: US)
  Receive Date: 20180727
  Receipt Date: 20180727
  Transmission Date: 20181010
  Serious: Yes (Other)
  Sender: FDA-Public Use
  Company Number: US-MYLANLABS-2018M1055749

PATIENT
  Age: 10 Month
  Sex: Male

DRUGS (3)
  1. CARBOPLATIN. [Suspect]
     Active Substance: CARBOPLATIN
     Indication: CONGENITAL RETINOBLASTOMA
     Dosage: ROUTE: INTRA?OPHTHALMIC ARTERY
     Route: 031
  2. TOPOTECAN [Suspect]
     Active Substance: TOPOTECAN HYDROCHLORIDE
     Indication: CONGENITAL RETINOBLASTOMA
     Dosage: ROUTE: INTRA?OPHTHALMIC ARTERY
     Route: 031
  3. MELPHALAN. [Suspect]
     Active Substance: MELPHALAN
     Indication: CONGENITAL RETINOBLASTOMA
     Dosage: ROUTE: INTRA?OPHTHALMIC ARTERY
     Route: 031

REACTIONS (1)
  - Optic ischaemic neuropathy [Recovering/Resolving]
